FAERS Safety Report 10930149 (Version 1)
Quarter: 2015Q1

REPORT INFORMATION
  Report Type: Spontaneous
  Country: US (occurrence: US)
  Receive Date: 20150319
  Receipt Date: 20150319
  Transmission Date: 20150721
  Serious: Yes (Life-Threatening, Hospitalization)
  Sender: FDA-Public Use
  Company Number: US-MYLANLABS-2015M1008697

PATIENT

DRUGS (16)
  1. FENTANYL. [Suspect]
     Active Substance: FENTANYL
     Route: 064
  2. BACITRACIN. [Concomitant]
     Active Substance: BACITRACIN
     Indication: BURN DRESSING
     Route: 064
  3. FAMOTIDINE. [Concomitant]
     Active Substance: FAMOTIDINE
     Indication: PROPHYLAXIS AGAINST GASTROINTESTINAL ULCER
     Route: 064
  4. TERBUTALINE [Concomitant]
     Active Substance: TERBUTALINE
     Indication: PREMATURE LABOUR
     Route: 064
  5. SEVOFLURANE. [Suspect]
     Active Substance: SEVOFLURANE
     Indication: MAINTENANCE OF ANAESTHESIA
     Route: 064
  6. SODIUM CITRATE. [Concomitant]
     Active Substance: SODIUM CITRATE
     Indication: PREMEDICATION
     Route: 064
  7. MORPHINE [Suspect]
     Active Substance: MORPHINE
     Dosage: UNK
     Route: 064
  8. ROCURONIUM BROMIDE. [Suspect]
     Active Substance: ROCURONIUM BROMIDE
     Route: 064
  9. BETAMETHASONE [Concomitant]
     Active Substance: BETAMETHASONE
     Indication: MATERNAL THERAPY TO ENHANCE FOETAL LUNG MATURITY
     Route: 064
  10. METOCLOPRAMIDE. [Concomitant]
     Active Substance: METOCLOPRAMIDE
     Indication: PREMEDICATION
     Route: 064
  11. PROPOFOL. [Suspect]
     Active Substance: PROPOFOL
     Indication: INDUCTION OF ANAESTHESIA
     Dosage: 200MG
     Route: 064
  12. LACTATED RINGERS [Concomitant]
     Active Substance: CALCIUM CHLORIDE\POTASSIUM CHLORIDE\SODIUM CHLORIDE\SODIUM LACTATE
     Dosage: 4L DURING SURGERY
     Route: 064
  13. ROCURONIUM BROMIDE. [Suspect]
     Active Substance: ROCURONIUM BROMIDE
     Dosage: 40MG
     Route: 064
  14. LACTATED RINGERS [Concomitant]
     Active Substance: CALCIUM CHLORIDE\POTASSIUM CHLORIDE\SODIUM CHLORIDE\SODIUM LACTATE
     Indication: FLUID REPLACEMENT
     Dosage: 1 L; THEN 500 ML/H
     Route: 064
  15. LACTATED RINGERS [Concomitant]
     Active Substance: CALCIUM CHLORIDE\POTASSIUM CHLORIDE\SODIUM CHLORIDE\SODIUM LACTATE
     Dosage: 500 ML/H (APPROX 5L OVER FIRST 8H)
     Route: 064
  16. SILVER SULFADIAZINE. [Concomitant]
     Active Substance: SILVER SULFADIAZINE
     Indication: BURN DRESSING
     Route: 064

REACTIONS (2)
  - Neonatal respiratory depression [Recovered/Resolved]
  - Foetal exposure during pregnancy [Recovered/Resolved]
